FAERS Safety Report 13766856 (Version 5)
Quarter: 2017Q3

REPORT INFORMATION
  Report Type: Spontaneous
  Country: JP (occurrence: JP)
  Receive Date: 20170719
  Receipt Date: 20170921
  Transmission Date: 20171127
  Serious: Yes (Hospitalization, Other)
  Sender: FDA-Public Use
  Company Number: JP-TEVA-788440ROM

PATIENT
  Age: 88 Year
  Sex: Female
  Weight: 48 kg

DRUGS (2)
  1. BENET [Suspect]
     Active Substance: RISEDRONATE SODIUM
     Indication: OSTEOPOROSIS
     Dosage: UNK UNK, Q WEEK
     Route: 048
     Dates: start: 201009, end: 201304
  2. BENET [Suspect]
     Active Substance: RISEDRONATE SODIUM
     Dosage: 75 MG, Q MONTH
     Route: 048
     Dates: start: 201304, end: 201607

REACTIONS (3)
  - Fall [Unknown]
  - Traumatic fracture [Recovering/Resolving]
  - Bone metabolism biochemical marker increased [Recovering/Resolving]

NARRATIVE: CASE EVENT DATE: 201607
